FAERS Safety Report 7281127-6 (Version None)
Quarter: 2011Q1

REPORT INFORMATION
  Report Type: 
  Country: None (occurrence: None)
  Receive Date: 20110203
  Receipt Date: 20110203
  Transmission Date: 20110831
  Serious: Yes (Other)
  Sender: FDA-Public Use
  Company Number: None

PATIENT
  Age: 29 Year
  Sex: Female
  Weight: 58.514 kg

DRUGS (1)
  1. DEPO-PROVERA [Suspect]
     Indication: CONTRACEPTION
     Dosage: ONE INJECTION ONCE IM
     Route: 030
     Dates: start: 20090101, end: 20110130

REACTIONS (5)
  - POLYMENORRHOEA [None]
  - MOOD SWINGS [None]
  - INFERTILITY FEMALE [None]
  - DEPRESSION [None]
  - ACNE [None]
